FAERS Safety Report 4520385-5 (Version None)
Quarter: 2004Q4

REPORT INFORMATION
  Report Type: 
  Country: None (occurrence: None)
  Receive Date: 20041203
  Receipt Date: 20041116
  Transmission Date: 20050328
  Serious: Yes (Hospitalization)
  Sender: FDA-Public Use
  Company Number: ST-2004-008145

PATIENT
  Age: 56 Year
  Sex: Male

DRUGS (13)
  1. OLMETEC [Suspect]
     Indication: HYPERTENSION
     Dosage: 20 MG QD PO
     Route: 048
     Dates: start: 20041004, end: 20041102
  2. BLOPRESS [Suspect]
     Dosage: 8 MG QD PO
     Route: 048
     Dates: start: 20031216, end: 20041004
  3. BLOPRESS [Suspect]
     Dosage: 4 MG QD PO
     Route: 048
     Dates: start: 20030124, end: 20031216
  4. CIBACEN [Suspect]
     Dosage: 5 MG BID PO
     Route: 048
     Dates: start: 20000324, end: 20041115
  5. ZYLORIC ^GLAXO WELLCOME^ [Suspect]
     Dosage: 100 MG BID PO
     Route: 048
     Dates: start: 20000324, end: 20041115
  6. CAPTORUNA [Suspect]
     Dosage: 12.5 MG QD PO
     Route: 048
     Dates: start: 20000826, end: 20041115
  7. TSURUDEK [Suspect]
     Indication: STOMACH DISCOMFORT
     Dosage: 150 MG BID PO
     Route: 048
     Dates: start: 20041004, end: 20041115
  8. CABAGIN [Suspect]
     Indication: STOMACH DISCOMFORT
     Dosage: 1 DF TID PO
     Route: 048
     Dates: start: 20041004, end: 20041011
  9. BUFFERIN [Concomitant]
  10. NITROPEN [Concomitant]
  11. HARNAL [Concomitant]
  12. COMESGEN [Concomitant]
  13. COBALAT [Concomitant]

REACTIONS (3)
  - CONDITION AGGRAVATED [None]
  - DISEASE PROGRESSION [None]
  - RENAL FAILURE CHRONIC [None]
